FAERS Safety Report 9447859 (Version 3)
Quarter: 2013Q4

REPORT INFORMATION
  Report Type: Spontaneous
  Country: JP (occurrence: JP)
  Receive Date: 20130808
  Receipt Date: 20131018
  Transmission Date: 20140711
  Serious: Yes (Other)
  Sender: FDA-Public Use
  Company Number: JP-BRISTOL-MYERS SQUIBB COMPANY-18949925

PATIENT
  Age: 62 Year
  Sex: Male
  Weight: 57 kg

DRUGS (2)
  1. ERBITUX SOLN FOR INF 5MG/ML [Suspect]
     Indication: LIP AND/OR ORAL CAVITY CANCER
     Dosage: 23APR2013:630MG 1 IN 1 WK?390MG 1 IN 1 WEEK:30APR13-ONG
     Route: 041
     Dates: start: 20130423, end: 20130522
  2. TAXOTERE [Suspect]
     Indication: LIP AND/OR ORAL CAVITY CANCER
     Route: 041
     Dates: start: 20130423, end: 20130423

REACTIONS (1)
  - Sinus bradycardia [Recovered/Resolved]
